FAERS Safety Report 4524728-8 (Version None)
Quarter: 2004Q4

REPORT INFORMATION
  Report Type: 
  Country: None (occurrence: None)
  Receive Date: 20041213
  Receipt Date: 20041019
  Transmission Date: 20050328
  Serious: Yes (Hospitalization)
  Sender: FDA-Public Use
  Company Number: US-JNJFOC-20041006164

PATIENT
  Sex: Female
  Weight: 90.72 kg

DRUGS (26)
  1. REMICADE [Suspect]
     Route: 042
  2. REMICADE [Suspect]
     Indication: RHEUMATOID ARTHRITIS
     Route: 042
  3. METHOTREXATE [Concomitant]
  4. PREDNISONE [Concomitant]
  5. PREMARIN [Concomitant]
  6. LEUCOVORIN [Concomitant]
  7. ZOLOFT [Concomitant]
  8. PREVACID [Concomitant]
  9. SPIRONOLACTONE [Concomitant]
  10. BUMEX [Concomitant]
  11. POTASSIUM [Concomitant]
  12. OSTEO [Concomitant]
  13. OSTEO [Concomitant]
  14. OSTEO [Concomitant]
  15. OSTEO [Concomitant]
  16. OSTEO [Concomitant]
  17. MULTIVITAMIN [Concomitant]
  18. MULTIVITAMIN [Concomitant]
  19. MULTIVITAMIN [Concomitant]
  20. MULTIVITAMIN [Concomitant]
  21. MULTIVITAMIN [Concomitant]
  22. MULTIVITAMIN [Concomitant]
  23. MULTIVITAMIN [Concomitant]
  24. MULTIVITAMIN [Concomitant]
  25. DARVOCET [Concomitant]
  26. DARVOCET [Concomitant]

REACTIONS (7)
  - ALOPECIA [None]
  - COUGH [None]
  - DRY MOUTH [None]
  - GANGLION [None]
  - IMPAIRED HEALING [None]
  - INCISION SITE COMPLICATION [None]
  - SYNOVIAL CYST [None]
